FAERS Safety Report 4502964-4 (Version None)
Quarter: 2004Q4

REPORT INFORMATION
  Report Type: 
  Country: None (occurrence: None)
  Receive Date: 20041116
  Receipt Date: 20041116
  Transmission Date: 20050328
  Serious: No
  Sender: FDA-Public Use
  Company Number: None

PATIENT
  Age: 49 Year
  Sex: Female
  Weight: 58.9676 kg

DRUGS (2)
  1. VIOXX [Suspect]
     Indication: TENDONITIS
     Dosage: 50 MG  DAILY ORAL
     Route: 048
     Dates: start: 20040720, end: 20040821
  2. SYNTHROID [Concomitant]

REACTIONS (2)
  - BLOOD PRESSURE INCREASED [None]
  - FIBROMUSCULAR DYSPLASIA [None]
